FAERS Safety Report 8984764 (Version 1)
Quarter: 2012Q4

REPORT INFORMATION
  Report Type: 
  Country: US (occurrence: US)
  Receive Date: 20121225
  Receipt Date: 20121225
  Transmission Date: 20130627
  Serious: Yes (Other)
  Sender: FDA-Public Use
  Company Number: US-JNJFOC-20121207640

PATIENT
  Sex: Female

DRUGS (1)
  1. DURAGESIC [Suspect]
     Indication: BACK PAIN
     Dosage: NDC# 50458-094-05
     Route: 062

REACTIONS (8)
  - Depression [Unknown]
  - Migraine [Unknown]
  - Headache [Unknown]
  - Drug ineffective [Unknown]
  - Wrong technique in drug usage process [Unknown]
  - Intentional drug misuse [Unknown]
  - Drug ineffective [Unknown]
  - Vomiting [Unknown]
